FAERS Safety Report 4967209-X (Version None)
Quarter: 2006Q2

REPORT INFORMATION
  Report Type: 
  Country: None (occurrence: None)
  Receive Date: 20060403
  Receipt Date: 20060321
  Transmission Date: 20061013
  Serious: Yes (Death, Life-Threatening, Hospitalization, Other)
  Sender: FDA-Public Use
  Company Number: 2006033217

PATIENT
  Age: 65 Year
  Sex: Male
  Weight: 72.5755 kg

DRUGS (8)
  1. SUTENT [Suspect]
     Indication: GASTROINTESTINAL STROMAL TUMOUR
     Dosage: 50 MG (50 MG, 1 IN 1 D), ORAL
     Route: 048
     Dates: start: 20060210, end: 20060310
  2. PATHOTHENIC ACID (PANTHOTHENIC ACID) [Concomitant]
  3. MULTIVITAMIN [Concomitant]
  4. ZINC SULFATE (ZINC SULFATE) [Concomitant]
  5. ADVIR (FLUTICASONE PROPIONATE, SALMETEROL XINAFOATE) [Concomitant]
  6. ALBUTEROL [Concomitant]
  7. ZETIA [Concomitant]
  8. SPIRIVA ^PFZIER^ (TIOTROPIUM BROMIDE) [Concomitant]

REACTIONS (8)
  - ANOREXIA [None]
  - ASPARTATE AMINOTRANSFERASE INCREASED [None]
  - GLOSSODYNIA [None]
  - HAEMOLYTIC ANAEMIA [None]
  - MEMORY IMPAIRMENT [None]
  - MYOCARDIAL INFARCTION [None]
  - PULMONARY OEDEMA [None]
  - THROMBOCYTOPENIA [None]
